FAERS Safety Report 9578698 (Version 1)
Quarter: 2013Q4

REPORT INFORMATION
  Report Type: Spontaneous
  Country: US (occurrence: US)
  Receive Date: 20131001
  Receipt Date: 20131001
  Transmission Date: 20140711
  Serious: No
  Sender: FDA-Public Use
  Company Number: US-AMGEN-USASP2013014626

PATIENT
  Age: 50 Year
  Sex: Female
  Weight: 85.71 kg

DRUGS (7)
  1. ENBREL [Suspect]
     Indication: PRODUCT USED FOR UNKNOWN INDICATION
     Dosage: 50 MG, QWK
     Route: 058
  2. VITAMIN D                          /00107901/ [Concomitant]
     Dosage: 400 UNIT, UNK
  3. LISINOPRIL [Concomitant]
     Dosage: 10 MG, UNK
  4. MULTIVITAMIN                       /00097801/ [Concomitant]
     Dosage: UNK
  5. CALCIUM D                          /00944201/ [Concomitant]
     Dosage: UNK
  6. METHOTREXATE [Concomitant]
     Dosage: 2.5 MG, UNK
  7. LEVOTHYROXIN [Concomitant]
     Dosage: 25 MUG, UNK

REACTIONS (2)
  - Cough [Unknown]
  - Throat irritation [Unknown]
